FAERS Safety Report 10713342 (Version 1)
Quarter: 2015Q1

REPORT INFORMATION
  Report Type: Spontaneous
  Country: ES (occurrence: ES)
  Receive Date: 20150115
  Receipt Date: 20150115
  Transmission Date: 20150721
  Serious: Yes (Hospitalization, Other)
  Sender: FDA-Public Use
  Company Number: ES-SHIRE-ES201408944

PATIENT
  Age: 84 Year
  Sex: Female

DRUGS (7)
  1. ADIRO [Concomitant]
     Active Substance: ASPIRIN
     Indication: PRODUCT USED FOR UNKNOWN INDICATION
     Dosage: 300 MG, 1X/DAY:QD
     Route: 065
     Dates: start: 2014
  2. PARIET [Concomitant]
     Active Substance: RABEPRAZOLE SODIUM
     Indication: PRODUCT USED FOR UNKNOWN INDICATION
     Dosage: 20 UNK, 1X/DAY:QD
     Route: 065
  3. SUTRIL NEO [Concomitant]
     Indication: PRODUCT USED FOR UNKNOWN INDICATION
     Dosage: 5 UNK, 1X/DAY:QD
     Route: 065
  4. CALCIUM AND VIT D [Concomitant]
     Indication: PRODUCT USED FOR UNKNOWN INDICATION
     Dosage: 1000/880 UNK, 1X/DAY:QD
     Route: 065
  5. XAGRID [Suspect]
     Active Substance: ANAGRELIDE HYDROCHLORIDE
     Indication: MYELOPROLIFERATIVE DISORDER
     Dosage: 0.5 MG, 1X/DAY:QD
     Route: 048
     Dates: start: 201312
  6. ENALAPRIL [Concomitant]
     Active Substance: ENALAPRIL
     Indication: PRODUCT USED FOR UNKNOWN INDICATION
     Dosage: 5 UNK, 1X/DAY:QD
     Route: 065
  7. ADIRO [Concomitant]
     Active Substance: ASPIRIN
     Dosage: 100 UNK, 1X/DAY:QD
     Route: 065
     Dates: end: 2014

REACTIONS (2)
  - Seizure [Recovered/Resolved]
  - Ischaemic stroke [Recovered/Resolved]

NARRATIVE: CASE EVENT DATE: 2014
